FAERS Safety Report 11654832 (Version 1)
Quarter: 2015Q4

REPORT INFORMATION
  Report Type: Report from Study
  Country: US (occurrence: US)
  Receive Date: 20151023
  Receipt Date: 20151023
  Transmission Date: 20160304
  Serious: Yes (Hospitalization)
  Sender: FDA-Public Use
  Company Number: US-ABBVIE-15K-163-1484257-00

PATIENT
  Sex: Female
  Weight: 45.85 kg

DRUGS (1)
  1. HUMIRA [Suspect]
     Active Substance: ADALIMUMAB
     Indication: RHEUMATOID ARTHRITIS
     Route: 058
     Dates: start: 2010

REACTIONS (8)
  - Spinal osteoarthritis [Recovering/Resolving]
  - Dysphagia [Not Recovered/Not Resolved]
  - Scoliosis [Recovering/Resolving]
  - Weight decreased [Recovered/Resolved]
  - Vomiting [Unknown]
  - Injection site bruising [Unknown]
  - Mucous stools [Unknown]
  - Diarrhoea [Unknown]
